FAERS Safety Report 4475811-7 (Version None)
Quarter: 2004Q4

REPORT INFORMATION
  Report Type: 
  Country: None (occurrence: None)
  Receive Date: 20041015
  Receipt Date: 20040929
  Transmission Date: 20050328
  Serious: Yes (Hospitalization)
  Sender: FDA-Public Use
  Company Number: A02200401659

PATIENT
  Age: 82 Year
  Sex: Female

DRUGS (9)
  1. HEMIGOXINE NATIVELLE [Suspect]
     Indication: DRUG USE FOR UNKNOWN INDICATION
     Dosage: .125MG PER DAY
     Route: 048
  2. KARDEGIC [Suspect]
     Indication: DRUG USE FOR UNKNOWN INDICATION
     Route: 048
  3. FLUDEX [Suspect]
     Dosage: 2UNIT PER DAY
     Route: 048
     Dates: start: 20040414, end: 20040424
  4. MUCOMYST [Suspect]
     Indication: DRUG USE FOR UNKNOWN INDICATION
     Dosage: 1UNIT FOUR TIMES PER DAY
     Route: 048
  5. ACENOCOUMAROL [Suspect]
     Indication: ATRIAL FLUTTER
     Dosage: 1.5MG PER DAY
     Dates: start: 20040418, end: 20040423
  6. TRIATEC [Suspect]
     Indication: PULMONARY HYPERTENSION
     Dosage: 2.5MG PER DAY
     Route: 048
  7. FRAXODI [Suspect]
     Indication: ATRIAL FLUTTER
     Route: 058
     Dates: start: 20040405, end: 20040423
  8. HYPNOVEL [Suspect]
     Indication: DRUG USE FOR UNKNOWN INDICATION
     Route: 042
     Dates: start: 20040423, end: 20040423
  9. SUFENTA [Suspect]
     Indication: DRUG USE FOR UNKNOWN INDICATION
     Route: 042
     Dates: start: 20040423, end: 20040423

REACTIONS (2)
  - PURPURA [None]
  - RASH ERYTHEMATOUS [None]
